FAERS Safety Report 25299277 (Version 2)
Quarter: 2025Q2

REPORT INFORMATION
  Report Type: Spontaneous
  Country: US (occurrence: US)
  Receive Date: 20250512
  Receipt Date: 20250606
  Transmission Date: 20250717
  Serious: Yes (Other)
  Sender: CSL BEHRING
  Company Number: US-BEH-2025204197

PATIENT
  Age: 35 Year
  Sex: Female

DRUGS (2)
  1. HAEGARDA [Suspect]
     Active Substance: HUMAN C1-ESTERASE INHIBITOR
     Indication: Hereditary angioedema
     Dosage: 6000 IU, BIW (EVERY 3 TO 4 DAYS)
     Route: 058
     Dates: start: 201712
  2. HAEGARDA [Suspect]
     Active Substance: HUMAN C1-ESTERASE INHIBITOR
     Indication: Prophylaxis

REACTIONS (7)
  - Hereditary angioedema [Recovered/Resolved]
  - Nephrolithiasis [Unknown]
  - Hereditary angioedema [Unknown]
  - Hereditary angioedema [Unknown]
  - Weight decreased [Unknown]
  - Product use issue [Unknown]
  - Therapy interrupted [Unknown]

NARRATIVE: CASE EVENT DATE: 20250101
